FAERS Safety Report 9404792 (Version 1)
Quarter: 2013Q3

REPORT INFORMATION
  Report Type: Spontaneous
  Country: US (occurrence: US)
  Receive Date: 20130717
  Receipt Date: 20130717
  Transmission Date: 20140515
  Serious: Yes (Other)
  Sender: FDA-Public Use
  Company Number: US-PFIZER INC-2013206991

PATIENT
  Sex: Female

DRUGS (1)
  1. CELEBREX [Suspect]
     Dosage: UNK
     Dates: start: 2000, end: 2008

REACTIONS (4)
  - Rectal haemorrhage [Unknown]
  - Erosive oesophagitis [Unknown]
  - Gastrointestinal disorder [Unknown]
  - Abdominal pain [Unknown]
